FAERS Safety Report 23200936 (Version 1)
Quarter: 2023Q4

REPORT INFORMATION
  Report Type: Spontaneous
  Country: US (occurrence: US)
  Receive Date: 20231118
  Receipt Date: 20231118
  Transmission Date: 20240110
  Serious: No
  Sender: FDA-Public Use
  Company Number: US-ABBVIE-5495136

PATIENT
  Sex: Female

DRUGS (1)
  1. DURYSTA [Suspect]
     Active Substance: BIMATOPROST
     Indication: Glaucoma
     Dosage: TIME INTERVAL: AS NECESSARY: FORM STRENGTH: 10 MICROGRAM; FREQUENCY: 1 SHOT
     Route: 031

REACTIONS (1)
  - Intraocular pressure test abnormal [Not Recovered/Not Resolved]

NARRATIVE: CASE EVENT DATE: 20231108
